FAERS Safety Report 20586141 (Version 2)
Quarter: 2022Q1

REPORT INFORMATION
  Report Type: Other
  Country: US (occurrence: None)
  Receive Date: 20220313
  Receipt Date: 20220316
  Transmission Date: 20220423
  Serious: No
  Sender: FDA-Public Use
  Company Number: US-ROCHE-3045627

PATIENT
  Age: 31 Year
  Sex: Female

DRUGS (2)
  1. OCREVUS [Suspect]
     Active Substance: OCRELIZUMAB
     Indication: Multiple sclerosis
     Dosage: THAN SUBSEQUENT 600 MG EVERY 6 MONTHS
     Route: 065
     Dates: start: 20210525
  2. TYSABRI [Concomitant]
     Active Substance: NATALIZUMAB

REACTIONS (3)
  - COVID-19 [Recovered/Resolved]
  - Burning sensation [Recovered/Resolved]
  - Infusion site pruritus [Recovered/Resolved]

NARRATIVE: CASE EVENT DATE: 20211101
